FAERS Safety Report 5787260-X (Version None)
Quarter: 2008Q2

REPORT INFORMATION
  Report Type: 
  Country: None (occurrence: None)
  Receive Date: 20080623
  Receipt Date: 20080623
  Transmission Date: 20081010
  Serious: Yes (Other)
  Sender: FDA-Public Use
  Company Number: None

PATIENT
  Sex: Female
  Weight: 58.9676 kg

DRUGS (1)
  1. KINERET [Suspect]
     Indication: RHEUMATOID ARTHRITIS
     Dosage: 100MG DAILKY SQ
     Route: 058
     Dates: start: 20080618, end: 20080620

REACTIONS (5)
  - ABDOMINAL PAIN UPPER [None]
  - HOT FLUSH [None]
  - INJECTION SITE REACTION [None]
  - LATEX ALLERGY [None]
  - PHARMACEUTICAL PRODUCT COMPLAINT [None]
